FAERS Safety Report 9062325 (Version 2)
Quarter: 2013Q1

REPORT INFORMATION
  Report Type: Spontaneous
  Country: MX (occurrence: MX)
  Receive Date: 20130129
  Receipt Date: 20130225
  Transmission Date: 20140127
  Serious: Yes (Other)
  Sender: FDA-Public Use
  Company Number: MX-ELI_LILLY_AND_COMPANY-MX201301006805

PATIENT
  Sex: Male

DRUGS (3)
  1. FORTEO [Suspect]
     Dosage: UNK, UNK
     Dates: start: 20121221, end: 20121228
  2. LYRICA [Concomitant]
  3. ACEMETACIN [Concomitant]

REACTIONS (9)
  - Blood pressure increased [Recovered/Resolved]
  - Intraocular pressure increased [Recovered/Resolved]
  - Effusion [Recovered/Resolved]
  - Eyelid oedema [Recovered/Resolved]
  - Epistaxis [Recovered/Resolved]
  - Headache [Recovered/Resolved]
  - Dizziness [Recovered/Resolved]
  - Malaise [Recovered/Resolved]
  - Rash [Not Recovered/Not Resolved]
